FAERS Safety Report 8932108 (Version 3)
Quarter: 2013Q2

REPORT INFORMATION
  Report Type: Report from Study
  Country: ES (occurrence: ES)
  Receive Date: 20121128
  Receipt Date: 20130506
  Transmission Date: 20140414
  Serious: Yes (Hospitalization)
  Sender: FDA-Public Use
  Company Number: ES-JNJFOC-20121111023

PATIENT
  Age: 40 Year
  Sex: Female

DRUGS (9)
  1. REMICADE [Suspect]
     Indication: SPONDYLOARTHROPATHY
     Route: 042
     Dates: start: 20090318
  2. PREGABALIN [Concomitant]
  3. XERISTAR [Concomitant]
  4. PANTOPRAZOLE [Concomitant]
  5. DICLOFENAC [Concomitant]
  6. NSAIDS NOS [Concomitant]
     Route: 065
  7. OMEPRAZOLE [Concomitant]
     Route: 065
  8. SSRI [Concomitant]
     Route: 065
  9. LYRICA [Concomitant]
     Route: 065

REACTIONS (1)
  - Squamous cell carcinoma [Not Recovered/Not Resolved]
